FAERS Safety Report 7879856-6 (Version None)
Quarter: 2011Q4

REPORT INFORMATION
  Report Type: 
  Country: None (occurrence: None)
  Receive Date: 20111101
  Receipt Date: 20111028
  Transmission Date: 20120403
  Serious: Yes (Other)
  Sender: FDA-Public Use
  Company Number: FR-ROCHE-1002193

PATIENT
  Sex: Male

DRUGS (7)
  1. MABTHERA [Suspect]
     Dates: start: 20080701
  2. MABTHERA [Suspect]
     Indication: RHEUMATOID ARTHRITIS
     Route: 042
     Dates: start: 20070207
  3. CORDARONE [Concomitant]
  4. TENORMIN [Concomitant]
  5. ENBREL [Concomitant]
     Dates: start: 20040101
  6. MABTHERA [Suspect]
     Dates: start: 20071201
  7. DIAMICRON [Concomitant]

REACTIONS (1)
  - BLADDER NEOPLASM [None]
